FAERS Safety Report 7743641-6 (Version None)
Quarter: 2011Q3

REPORT INFORMATION
  Report Type: 
  Country: None (occurrence: None)
  Receive Date: 20110902
  Receipt Date: 20110823
  Transmission Date: 20111222
  Serious: Yes (Other)
  Sender: FDA-Public Use
  Company Number: B0743499A

PATIENT
  Age: 12 Year
  Sex: Female

DRUGS (1)
  1. LAMOTRIGINE [Suspect]

REACTIONS (5)
  - HEPATIC FIBROSIS [None]
  - HEPATOTOXICITY [None]
  - HEPATITIS ACUTE [None]
  - ANTINUCLEAR ANTIBODY POSITIVE [None]
  - BILIARY TRACT DISORDER [None]
